FAERS Safety Report 23814531 (Version 1)
Quarter: 2024Q2

REPORT INFORMATION
  Report Type: Spontaneous
  Country: US (occurrence: None)
  Receive Date: 20240502
  Receipt Date: 20240502
  Transmission Date: 20240716
  Serious: Yes (unspecified)
  Sender: FDA-Public Use
  Company Number: None

PATIENT
  Age: 71 Year
  Sex: Female

DRUGS (1)
  1. SKYRIZI [Suspect]
     Active Substance: RISANKIZUMAB-RZAA
     Dosage: FREQUENCY : AS DIRECTED;?

REACTIONS (4)
  - Hepatic cirrhosis [None]
  - Fall [None]
  - Gait inability [None]
  - Loss of personal independence in daily activities [None]
